FAERS Safety Report 15691807 (Version 2)
Quarter: 2018Q4

REPORT INFORMATION
  Report Type: Spontaneous
  Country: JP (occurrence: JP)
  Receive Date: 20181205
  Receipt Date: 20181212
  Transmission Date: 20190205
  Serious: Yes (Hospitalization, Other)
  Sender: FDA-Public Use
  Company Number: JP-ABBVIE-18P-087-2575924-00

PATIENT
  Age: 20 Year
  Sex: Female

DRUGS (3)
  1. ADALIMUMAB [Suspect]
     Active Substance: ADALIMUMAB
     Indication: COLITIS ULCERATIVE
     Route: 058
  2. PREDNISOLONE. [Suspect]
     Active Substance: PREDNISOLONE
     Indication: COLITIS ULCERATIVE
     Route: 065
  3. PREDNISOLONE. [Suspect]
     Active Substance: PREDNISOLONE
     Route: 065

REACTIONS (6)
  - Catheter site thrombosis [Unknown]
  - Procedural complication [Unknown]
  - Malnutrition [Unknown]
  - Pulmonary embolism [Unknown]
  - Colitis ulcerative [Unknown]
  - Emotional distress [Unknown]
